FAERS Safety Report 6438343-2 (Version None)
Quarter: 2009Q4

REPORT INFORMATION
  Report Type: 
  Country: None (occurrence: None)
  Receive Date: 20091112
  Receipt Date: 20081008
  Transmission Date: 20100525
  Serious: No
  Sender: FDA-Public Use
  Company Number: US-ASTRAZENECA-2009UW15439

PATIENT
  Age: 60 Year
  Sex: Male

DRUGS (8)
  1. PRILOSEC OTC [Suspect]
     Indication: DYSPEPSIA
     Dosage: 1 TABLET, 2 /DAY FOR 13 DAYS
     Route: 048
     Dates: start: 20080924, end: 20081007
  2. PRILOSEC OTC [Suspect]
     Indication: GASTROOESOPHAGEAL REFLUX DISEASE
     Dosage: 1 TABLET, 2 /DAY FOR 13 DAYS
     Route: 048
     Dates: start: 20080924, end: 20081007
  3. PRILOSEC OTC [Suspect]
     Dosage: 1 TABLET, 1 /DAY FOR 1 DAY
     Route: 048
     Dates: start: 20081008, end: 20081008
  4. PRILOSEC OTC [Suspect]
     Dosage: 1 TABLET, 1 /DAY FOR 1 DAY
     Route: 048
     Dates: start: 20081008, end: 20081008
  5. BUSPAR [Suspect]
     Route: 048
  6. ALKA SELTZER [Suspect]
     Route: 048
  7. LEXAPRO [Concomitant]
  8. ALPRAZOLAM [Concomitant]

REACTIONS (2)
  - INAPPROPRIATE SCHEDULE OF DRUG ADMINISTRATION [None]
  - VOMITING [None]
